FAERS Safety Report 11185579 (Version 2)
Quarter: 2016Q3

REPORT INFORMATION
  Report Type: Spontaneous
  Country: DK (occurrence: DK)
  Receive Date: 20150612
  Receipt Date: 20160802
  Transmission Date: 20161109
  Serious: Yes (Hospitalization)
  Sender: FDA-Public Use
  Company Number: DK-ABBVIE-15P-044-1407896-00

PATIENT
  Age: 35 Year
  Sex: Female

DRUGS (2)
  1. DEPRAKINE [Suspect]
     Active Substance: VALPROIC ACID
     Route: 065
     Dates: start: 20090213
  2. DEPRAKINE [Suspect]
     Active Substance: VALPROIC ACID
     Indication: EPILEPSY
     Route: 065
     Dates: start: 1995, end: 200603

REACTIONS (4)
  - Osteoporosis [Unknown]
  - Osteopenia [Unknown]
  - Lumbar vertebral fracture [Unknown]
  - Spinal operation [Unknown]

NARRATIVE: CASE EVENT DATE: 20090201
